FAERS Safety Report 23506428 (Version 1)
Quarter: 2024Q1

REPORT INFORMATION
  Report Type: Spontaneous
  Country: US (occurrence: US)
  Receive Date: 20240209
  Receipt Date: 20240209
  Transmission Date: 20240410
  Serious: No
  Sender: FDA-Public Use
  Company Number: US-IBSA PHARMA INC.-2023IBS000017

PATIENT

DRUGS (1)
  1. TIROSINT-SOL [Suspect]
     Active Substance: LEVOTHYROXINE SODIUM
     Indication: Thyroid disorder
     Dosage: UNK
     Route: 048

REACTIONS (6)
  - Laboratory test abnormal [Unknown]
  - Gastrointestinal disorder [Unknown]
  - Asthenia [Unknown]
  - Product dose omission issue [Unknown]
  - Headache [Unknown]
  - Product availability issue [Unknown]
